FAERS Safety Report 13763708 (Version 2)
Quarter: 2017Q3

REPORT INFORMATION
  Report Type: Spontaneous
  Country: US (occurrence: US)
  Receive Date: 20170718
  Receipt Date: 20170814
  Transmission Date: 20171127
  Serious: Yes (Death, Hospitalization)
  Sender: FDA-Public Use
  Company Number: US-JNJFOC-20170713029

PATIENT
  Age: 74 Year
  Sex: Male

DRUGS (10)
  1. IMBRUVICA [Suspect]
     Active Substance: IBRUTINIB
     Indication: MANTLE CELL LYMPHOMA
     Route: 048
     Dates: start: 20161012, end: 20170627
  2. CARVEDILOL. [Concomitant]
     Active Substance: CARVEDILOL
  3. FLUCONAZOLE. [Concomitant]
     Active Substance: FLUCONAZOLE
  4. BACLOFEN. [Concomitant]
     Active Substance: BACLOFEN
  5. METOPROLOL. [Concomitant]
     Active Substance: METOPROLOL
  6. LOSARTAN. [Concomitant]
     Active Substance: LOSARTAN
  7. PROCHLORPERAZINE. [Concomitant]
     Active Substance: PROCHLORPERAZINE
  8. ACYCLOVIR. [Concomitant]
     Active Substance: ACYCLOVIR
  9. MULTIVITAMINS [Concomitant]
     Active Substance: VITAMINS
  10. ATORVASTATIN [Concomitant]
     Active Substance: ATORVASTATIN

REACTIONS (1)
  - Disease progression [Fatal]

NARRATIVE: CASE EVENT DATE: 20170630
